FAERS Safety Report 23028646 (Version 1)
Quarter: 2023Q4

REPORT INFORMATION
  Report Type: Report from Study
  Country: TW (occurrence: None)
  Receive Date: 20231004
  Receipt Date: 20231004
  Transmission Date: 20240110
  Serious: Yes (Death, Life-Threatening, Hospitalization, Other)
  Sender: FDA-Public Use
  Company Number: 2023A048045

PATIENT
  Age: 70 Year
  Sex: Male

DRUGS (35)
  1. DURVALUMAB [Suspect]
     Active Substance: DURVALUMAB
     Indication: Oesophageal squamous cell carcinoma
     Route: 042
     Dates: start: 20221005, end: 20221005
  2. DURVALUMAB [Suspect]
     Active Substance: DURVALUMAB
     Indication: Oesophageal squamous cell carcinoma
     Route: 042
     Dates: start: 20221103, end: 20221103
  3. DURVALUMAB [Suspect]
     Active Substance: DURVALUMAB
     Indication: Oesophageal squamous cell carcinoma
     Route: 042
     Dates: start: 20221209, end: 20221209
  4. DURVALUMAB [Suspect]
     Active Substance: DURVALUMAB
     Indication: Oesophageal squamous cell carcinoma
     Route: 042
     Dates: start: 20230106, end: 20230106
  5. DURVALUMAB [Suspect]
     Active Substance: DURVALUMAB
     Indication: Oesophageal squamous cell carcinoma
     Route: 042
     Dates: start: 20230202, end: 20230202
  6. LEVOFLOXACIN [Suspect]
     Active Substance: LEVOFLOXACIN
     Indication: Sepsis
     Route: 042
     Dates: start: 20230316, end: 20230321
  7. LEVOFLOXACIN [Suspect]
     Active Substance: LEVOFLOXACIN
     Indication: Sepsis
     Dosage: 750.0MG ONCE/SINGLE ADMINISTRATION
     Route: 042
     Dates: start: 20230316, end: 20230316
  8. CISPLATIN [Concomitant]
     Active Substance: CISPLATIN
     Indication: Oesophageal squamous cell carcinoma
     Dates: start: 20221005, end: 20221005
  9. CISPLATIN [Concomitant]
     Active Substance: CISPLATIN
     Indication: Oesophageal squamous cell carcinoma
     Dates: start: 20221103, end: 20221103
  10. CISPLATIN [Concomitant]
     Active Substance: CISPLATIN
     Indication: Oesophageal squamous cell carcinoma
     Dates: start: 20221209, end: 20221209
  11. CISPLATIN [Concomitant]
     Active Substance: CISPLATIN
     Indication: Oesophageal squamous cell carcinoma
     Dates: start: 20230106, end: 20230106
  12. FLUOROURACIL [Concomitant]
     Active Substance: FLUOROURACIL
     Indication: Oesophageal squamous cell carcinoma
     Dates: start: 20221005, end: 20221009
  13. FLUOROURACIL [Concomitant]
     Active Substance: FLUOROURACIL
     Indication: Oesophageal squamous cell carcinoma
     Dates: start: 20221103, end: 20221107
  14. FLUOROURACIL [Concomitant]
     Active Substance: FLUOROURACIL
     Indication: Oesophageal squamous cell carcinoma
     Dates: start: 20221209, end: 20221209
  15. FLUOROURACIL [Concomitant]
     Active Substance: FLUOROURACIL
     Indication: Oesophageal squamous cell carcinoma
     Dates: start: 20230106, end: 20230110
  16. MONTMORILLONITE [Concomitant]
     Active Substance: MONTMORILLONITE
     Indication: Chemotherapy
     Route: 048
     Dates: start: 20230223, end: 20230227
  17. MONTMORILLONITE [Concomitant]
     Active Substance: MONTMORILLONITE
     Indication: Prophylaxis against diarrhoea
     Route: 048
     Dates: start: 20230223, end: 20230227
  18. LANSOPRAZOLE [Concomitant]
     Active Substance: LANSOPRAZOLE
     Indication: Chemotherapy
     Route: 048
     Dates: start: 20220919
  19. TRACETON FC [Concomitant]
     Indication: Chemotherapy
     Dosage: 1.0DF AS REQUIRED
     Route: 048
     Dates: start: 20230223, end: 20230321
  20. TRACETON FC [Concomitant]
     Indication: Malaise
     Dosage: 1.0DF AS REQUIRED
     Route: 048
     Dates: start: 20230223, end: 20230321
  21. LANSOPRAZOLE [Concomitant]
     Active Substance: LANSOPRAZOLE
     Indication: Gastrooesophageal reflux prophylaxis
     Route: 048
     Dates: start: 20221207
  22. POTASSIUM CHLORIDE [Concomitant]
     Active Substance: POTASSIUM CHLORIDE
     Indication: Hypokalaemia
     Route: 048
     Dates: start: 20230119, end: 20230202
  23. MEGESTROL ACETATE [Concomitant]
     Active Substance: MEGESTROL ACETATE
     Indication: Feeding disorder
     Route: 048
     Dates: start: 20230202, end: 20230216
  24. MOSAPRIDE CITRATE FC [Concomitant]
     Indication: Gastrooesophageal reflux prophylaxis
     Route: 048
     Dates: start: 20230119, end: 20230202
  25. FAMOTIDINE [Concomitant]
     Active Substance: FAMOTIDINE
     Indication: Gastrooesophageal reflux prophylaxis
     Route: 048
     Dates: start: 20230119, end: 20230202
  26. MEROPENEM [Concomitant]
     Active Substance: MEROPENEM
     Indication: Sepsis
     Dates: start: 20230223, end: 20230223
  27. MEROPENEM [Concomitant]
     Active Substance: MEROPENEM
     Indication: Sepsis
     Dates: start: 20230223, end: 20230303
  28. ALBUMIN HUMAN [Concomitant]
     Active Substance: ALBUMIN HUMAN
     Indication: Hypoalbuminaemia
     Dates: start: 20230223
  29. ALBUMIN HUMAN [Concomitant]
     Active Substance: ALBUMIN HUMAN
     Indication: Chemotherapy side effect prophylaxis
     Dates: start: 20230223
  30. MEGEST [Concomitant]
     Dates: start: 20230202, end: 20230216
  31. APREPITANT [Concomitant]
     Active Substance: APREPITANT
     Indication: Chemotherapy side effect prophylaxis
     Dates: start: 20221103
  32. METOCLOPRAMIDE [Concomitant]
     Active Substance: METOCLOPRAMIDE
     Indication: Chemotherapy side effect prophylaxis
     Dates: start: 20221103
  33. AMINO ACIDS\DEXTROSE\ELECTROLYTES NOS\VITAMINS [Concomitant]
     Active Substance: AMINO ACIDS\DEXTROSE\ELECTROLYTES NOS\VITAMINS
     Dates: start: 20230224
  34. AMINO ACIDS\DEXTROSE\ELECTROLYTES NOS\VITAMINS [Concomitant]
     Active Substance: AMINO ACIDS\DEXTROSE\ELECTROLYTES NOS\VITAMINS
     Dates: start: 20230224
  35. SMOFLIPID EMULSION INJ 20% [Concomitant]
     Dates: start: 20230224

REACTIONS (2)
  - Sepsis [Fatal]
  - Drug-induced liver injury [Recovered/Resolved]

NARRATIVE: CASE EVENT DATE: 20230223
